FAERS Safety Report 8490737-X (Version None)
Quarter: 2012Q3

REPORT INFORMATION
  Report Type: 
  Country: None (occurrence: None)
  Receive Date: 20120706
  Receipt Date: 20120629
  Transmission Date: 20120928
  Serious: Yes (Death, Hospitalization)
  Sender: FDA-Public Use
  Company Number: US-BIOGENIDEC-2011BI013993

PATIENT
  Age: 59 Year
  Sex: Male

DRUGS (14)
  1. COUMADIN [Concomitant]
  2. AMIODARONE HCL [Concomitant]
  3. VITAMIN B-12 [Concomitant]
  4. METHYLPREDNISOLONE [Concomitant]
  5. TRAZODONE HCL [Concomitant]
  6. NUVIGIL [Concomitant]
  7. ARICEPT [Concomitant]
  8. METOPROLOL SUCCINATE [Concomitant]
  9. VITAMIN E [Concomitant]
  10. TYSABRI [Suspect]
     Indication: MULTIPLE SCLEROSIS
     Route: 042
     Dates: start: 20080307, end: 20110318
  11. FISH OIL [Concomitant]
  12. LIPITOR [Concomitant]
  13. AMIODARONE HCL [Concomitant]
  14. FENOFIBRATE [Concomitant]

REACTIONS (3)
  - SEPTIC SHOCK [None]
  - PNEUMONIA [None]
  - RENAL FAILURE ACUTE [None]
